FAERS Safety Report 16741284 (Version 1)
Quarter: 2019Q3

REPORT INFORMATION
  Report Type: Report from Study
  Country: AR (occurrence: AR)
  Receive Date: 20190826
  Receipt Date: 20190826
  Transmission Date: 20191005
  Serious: Yes (Death)
  Sender: FDA-Public Use
  Company Number: AR-ACTELION-A-CH2018-183399

PATIENT
  Age: 47 Year
  Sex: Female
  Weight: 156 kg

DRUGS (1)
  1. TRACLEER [Suspect]
     Active Substance: BOSENTAN
     Indication: PULMONARY ARTERIAL HYPERTENSION
     Dosage: 125 MG, QD
     Route: 048
     Dates: start: 20130101

REACTIONS (7)
  - Chest pain [Not Recovered/Not Resolved]
  - Hypotension [Recovering/Resolving]
  - Back pain [Not Recovered/Not Resolved]
  - Death [Fatal]
  - Depressed mood [Not Recovered/Not Resolved]
  - Dizziness [Recovering/Resolving]
  - Bedridden [Unknown]

NARRATIVE: CASE EVENT DATE: 201811
